FAERS Safety Report 4428398-9 (Version None)
Quarter: 2004Q3

REPORT INFORMATION
  Report Type: 
  Country: None (occurrence: None)
  Receive Date: 20040813
  Receipt Date: 20040803
  Transmission Date: 20050211
  Serious: Yes (Life-Threatening, Hospitalization)
  Sender: FDA-Public Use
  Company Number: 2004035033

PATIENT
  Age: 38 Year
  Sex: Female
  Weight: 83 kg

DRUGS (3)
  1. ZOLOFT [Suspect]
     Indication: DEPRESSION
     Dosage: 100 MG (50 MG), ORAL
     Route: 048
     Dates: start: 20040101
  2. BISOPROLOL FUMARATE [Concomitant]
  3. AMITRIPYTLINE HYDROCHLORIDE [Concomitant]

REACTIONS (3)
  - HAEMORRHAGE [None]
  - IDIOPATHIC THROMBOCYTOPENIC PURPURA [None]
  - THROMBOCYTHAEMIA [None]
